FAERS Safety Report 20891723 (Version 2)
Quarter: 2022Q3

REPORT INFORMATION
  Report Type: Spontaneous
  Country: TR (occurrence: TR)
  Receive Date: 20220530
  Receipt Date: 20220805
  Transmission Date: 20221027
  Serious: Yes (Hospitalization)
  Sender: FDA-Public Use
  Company Number: TR-NOVARTISPH-NVSC2022TR122681

PATIENT

DRUGS (4)
  1. CARBAMAZEPINE [Suspect]
     Active Substance: CARBAMAZEPINE
     Indication: Foetal exposure during pregnancy
     Dosage: MATERNAL EXPOSURE DURING PREGNANCY: 200 MG, QID
     Route: 064
  2. FERROUS SULFATE [Suspect]
     Active Substance: FERROUS SULFATE
     Indication: Foetal exposure during pregnancy
     Dosage: MATERNAL EXPOSURE DURING PREGNANCY: 0.35 MG (X7)
     Route: 064
  3. FOLIC ACID [Suspect]
     Active Substance: FOLIC ACID
     Indication: Foetal exposure during pregnancy
     Dosage: MATERNAL EXPOSURE DURING PREGNANCY: 80 MG (X 7)
     Route: 064
  4. MINERALS\VITAMINS [Suspect]
     Active Substance: MINERALS\VITAMINS
     Indication: Foetal exposure during pregnancy
     Dosage: MATERNAL EXPOSURE DURING PREGNANCY: UNK (X8)
     Route: 064

REACTIONS (3)
  - Premature baby [Unknown]
  - Small for dates baby [Unknown]
  - Foetal exposure during pregnancy [Unknown]
